FAERS Safety Report 6315212-X (Version None)
Quarter: 2009Q3

REPORT INFORMATION
  Report Type: 
  Country: None (occurrence: None)
  Receive Date: 20090819
  Receipt Date: 20090819
  Transmission Date: 20100115
  Serious: Yes (Death)
  Sender: FDA-Public Use
  Company Number: JP-B.I. PHARMACEUTICALS,INC./RIDGEFIELD-2009-BP-08754NB

PATIENT
  Sex: Female
  Weight: 48 kg

DRUGS (6)
  1. MICARDIS [Suspect]
     Indication: HYPERTENSION
     Dosage: 60 MG
     Route: 048
     Dates: start: 20060529, end: 20090306
  2. AMLODIPINE [Concomitant]
     Indication: HYPERTENSION
     Dosage: 5 MG
     Route: 048
     Dates: start: 20060529
  3. SIGMART [Concomitant]
     Indication: ANGINA PECTORIS
     Dosage: 15 MG
     Route: 048
     Dates: start: 20060529
  4. FLUITRAN [Concomitant]
     Indication: HYPERTENSION
     Dosage: 2 MG
     Route: 048
     Dates: start: 20060529
  5. MAINTATE [Concomitant]
     Indication: ANGINA PECTORIS
     Dosage: 1.25 MG
     Route: 048
     Dates: start: 20080407
  6. TOWAMIN [Concomitant]
     Indication: HYPERTENSION
     Dosage: 25 MG
     Route: 048
     Dates: start: 20060526, end: 20080310

REACTIONS (2)
  - ATRIAL FIBRILLATION [None]
  - DEATH [None]
